FAERS Safety Report 19415590 (Version 2)
Quarter: 2021Q4

REPORT INFORMATION
  Report Type: Spontaneous
  Country: US (occurrence: US)
  Receive Date: 20210614
  Receipt Date: 20211103
  Transmission Date: 20220303
  Serious: No
  Sender: FDA-Public Use
  Company Number: US-PFIZER INC-2019550640

PATIENT
  Age: 73 Year
  Sex: Female
  Weight: 60.33 kg

DRUGS (1)
  1. ESTRING [Suspect]
     Active Substance: ESTRADIOL
     Indication: Hypertrophy
     Dosage: UNK (VAGINAL RING INSERTED EVERY 3 MONTHS)

REACTIONS (1)
  - Off label use [Unknown]
